FAERS Safety Report 12748344 (Version 1)
Quarter: 2016Q3

REPORT INFORMATION
  Report Type: Report from Study
  Country: BR (occurrence: BR)
  Receive Date: 20160915
  Receipt Date: 20160915
  Transmission Date: 20161109
  Serious: Yes (Other)
  Sender: FDA-Public Use
  Company Number: BR-SA-2016SA168708

PATIENT
  Age: 61 Year
  Sex: Female

DRUGS (13)
  1. LEVOID [Concomitant]
     Active Substance: LEVOTHYROXINE
  2. APIDRA SOLOSTAR [Suspect]
     Active Substance: INSULIN GLULISINE
     Route: 065
     Dates: start: 2006
  3. GLIFAGE XR [Concomitant]
     Active Substance: METFORMIN HYDROCHLORIDE
     Dosage: 500 MG
  4. LANTUS SOLOSTAR [Suspect]
     Active Substance: INSULIN GLARGINE
     Route: 065
     Dates: start: 2006, end: 20160830
  5. ALENDRONATE [Concomitant]
     Active Substance: ALENDRONATE SODIUM
  6. SOLOSTAR [Concomitant]
     Active Substance: DEVICE
     Dates: start: 2006, end: 20160830
  7. INVOKANA [Concomitant]
     Active Substance: CANAGLIFLOZIN
  8. AAS [Concomitant]
     Active Substance: ASPIRIN
  9. CRESTOR [Concomitant]
     Active Substance: ROSUVASTATIN CALCIUM
     Dosage: 10 MG
  10. TOUJEO [Suspect]
     Active Substance: INSULIN GLARGINE
     Route: 065
     Dates: start: 20160831
  11. SOLOSTAR [Concomitant]
     Active Substance: DEVICE
     Dates: start: 20160831
  12. SOLOSTAR [Concomitant]
     Active Substance: DEVICE
     Dates: start: 2006
  13. RAMIPRIL. [Concomitant]
     Active Substance: RAMIPRIL

REACTIONS (5)
  - Injection site pain [Unknown]
  - Injection site infection [Unknown]
  - Injection site inflammation [Unknown]
  - Product use issue [Unknown]
  - Hypoglycaemia [Unknown]

NARRATIVE: CASE EVENT DATE: 201601
